FAERS Safety Report 7938999-9 (Version None)
Quarter: 2011Q4

REPORT INFORMATION
  Report Type: 
  Country: None (occurrence: None)
  Receive Date: 20111124
  Receipt Date: 20111118
  Transmission Date: 20120403
  Serious: Yes (Hospitalization, Other)
  Sender: FDA-Public Use
  Company Number: US-AMGEN-USASP2011038856

PATIENT
  Age: 54 Year
  Sex: Female

DRUGS (6)
  1. TREXALL [Concomitant]
     Dosage: UNK
     Dates: start: 19970328, end: 20091021
  2. PREDNISONE TAB [Concomitant]
     Dosage: UNK
     Dates: start: 20090116, end: 20091101
  3. SIMVASTATIN [Concomitant]
     Dosage: UNK
  4. DICLOFENAC SODIUM [Concomitant]
     Dosage: UNK
     Dates: start: 20050101, end: 20091101
  5. ENBREL [Suspect]
     Dosage: 50 MG, QWK
     Dates: start: 20090311, end: 20090901
  6. ENBREL [Suspect]
     Indication: RHEUMATOID ARTHRITIS
     Dosage: 50 MG, QWK
     Dates: start: 20110501

REACTIONS (6)
  - ARTHRALGIA [None]
  - RHEUMATOID ARTHRITIS [None]
  - INJECTION SITE RASH [None]
  - URINARY TRACT INFECTION [None]
  - BREAST CANCER STAGE II [None]
  - LYMPHADENOPATHY [None]
